FAERS Safety Report 6865887-1 (Version None)
Quarter: 2010Q3

REPORT INFORMATION
  Report Type: 
  Country: None (occurrence: None)
  Receive Date: 20100722
  Receipt Date: 20100715
  Transmission Date: 20110219
  Serious: Yes (Hospitalization)
  Sender: FDA-Public Use
  Company Number: 164172

PATIENT
  Age: 48 Year
  Sex: Male

DRUGS (1)
  1. AVONEX [Suspect]
     Indication: MULTIPLE SCLEROSIS
     Route: 030
     Dates: start: 20010101

REACTIONS (5)
  - HAEMOGLOBIN DECREASED [None]
  - LUMBAR VERTEBRAL FRACTURE [None]
  - POSTOPERATIVE WOUND INFECTION [None]
  - PYREXIA [None]
  - ROAD TRAFFIC ACCIDENT [None]
